FAERS Safety Report 17468364 (Version 2)
Quarter: 2020Q1

REPORT INFORMATION
  Report Type: Report from Study
  Country: US (occurrence: US)
  Receive Date: 20200227
  Receipt Date: 20200323
  Transmission Date: 20200409
  Serious: Yes (Other)
  Sender: FDA-Public Use
  Company Number: US-ACTELION-A-US2019-198466

PATIENT
  Age: 64 Year
  Sex: Female
  Weight: 97.05 kg

DRUGS (2)
  1. OPSUMIT [Suspect]
     Active Substance: MACITENTAN
     Indication: PULMONARY ARTERIAL HYPERTENSION
     Dosage: 10 MG, QD
     Route: 048
  2. TADALAFIL. [Concomitant]
     Active Substance: TADALAFIL

REACTIONS (23)
  - Diarrhoea [Unknown]
  - Headache [Unknown]
  - Fatigue [Unknown]
  - Gastrointestinal polyp [Unknown]
  - Haemoglobin decreased [Unknown]
  - Sinus congestion [Unknown]
  - Condition aggravated [Unknown]
  - Asthenia [Unknown]
  - Product dose omission [Unknown]
  - Malaise [Unknown]
  - Muscular weakness [Unknown]
  - Anaemia [Unknown]
  - Dyspnoea [Unknown]
  - Somnolence [Unknown]
  - Sleep apnoea syndrome [Unknown]
  - Weight decreased [Unknown]
  - Blood iron decreased [Unknown]
  - Cyanosis [Unknown]
  - Palpitations [Unknown]
  - Unevaluable event [Unknown]
  - Drug ineffective [Unknown]
  - Nausea [Unknown]
  - Dizziness [Unknown]

NARRATIVE: CASE EVENT DATE: 20191101
